FAERS Safety Report 5820673-6 (Version None)
Quarter: 2008Q3

REPORT INFORMATION
  Report Type: 
  Country: None (occurrence: None)
  Receive Date: 20080724
  Receipt Date: 20080205
  Transmission Date: 20090109
  Serious: Yes (Hospitalization)
  Sender: FDA-Public Use
  Company Number: A0707501A

PATIENT
  Sex: Female

DRUGS (3)
  1. AVANDIA [Suspect]
     Route: 065
     Dates: start: 20070301, end: 20071201
  2. NITRATES [Concomitant]
  3. HYPERTENSION MED [Concomitant]

REACTIONS (1)
  - CARDIAC FAILURE CONGESTIVE [None]
